FAERS Safety Report 7631952-4 (Version None)
Quarter: 2011Q3

REPORT INFORMATION
  Report Type: 
  Country: None (occurrence: None)
  Receive Date: 20110725
  Receipt Date: 20110516
  Transmission Date: 20111222
  Serious: No
  Sender: FDA-Public Use
  Company Number: US-BRISTOL-MYERS SQUIBB COMPANY-15748122

PATIENT
  Age: 52 Year
  Sex: Female

DRUGS (1)
  1. COUMADIN [Suspect]
     Dosage: 1DF=5MG TABLET+ THE 2.5MG TABLET
     Dates: start: 20020101

REACTIONS (2)
  - CONTUSION [None]
  - EPISTAXIS [None]
